FAERS Safety Report 8333576-2 (Version None)
Quarter: 2012Q2

REPORT INFORMATION
  Report Type: 
  Country: None (occurrence: None)
  Receive Date: 20120503
  Receipt Date: 20120425
  Transmission Date: 20120825
  Serious: Yes (Other)
  Sender: FDA-Public Use
  Company Number: PHEH2012US008824

PATIENT
  Sex: Female

DRUGS (10)
  1. OXYCODONE HCL [Concomitant]
  2. ALPRAZOLAM [Concomitant]
  3. BUPROPION HCL [Concomitant]
  4. PROMETHAZINE [Concomitant]
  5. ASPIRIN [Concomitant]
  6. DIOVAN HCT [Suspect]
     Dosage: 1 DF (80 MG VALSARTAN AND 12.5 MG HYDROCHLOROTHIAZIDE), QD
  7. NEXIUM [Concomitant]
     Dosage: 40 MG, UNK
  8. LIPITOR [Concomitant]
     Dosage: 20 MG, UNK
  9. FLEXERIL [Concomitant]
  10. NEURONTIN [Concomitant]

REACTIONS (7)
  - THYROID DISORDER [None]
  - DEPRESSION [None]
  - HEPATIC CYST [None]
  - GASTROOESOPHAGEAL REFLUX DISEASE [None]
  - MYOCARDIAL INFARCTION [None]
  - ADRENAL MASS [None]
  - BLOOD PRESSURE FLUCTUATION [None]
